FAERS Safety Report 18142634 (Version 4)
Quarter: 2023Q1

REPORT INFORMATION
  Report Type: Report from Study
  Country: US (occurrence: None)
  Receive Date: 20200813
  Receipt Date: 20230207
  Transmission Date: 20230417
  Serious: Yes (Life-Threatening, Hospitalization)
  Sender: FDA-Public Use
  Company Number: US-ROCHE-2657785

PATIENT
  Age: 61 Year
  Sex: Female
  Weight: 103 kg

DRUGS (8)
  1. ATEZOLIZUMAB [Suspect]
     Active Substance: ATEZOLIZUMAB
     Indication: Invasive breast carcinoma
     Dosage: ON DAYS 1 AND 22?DATE OF LAST DOSE ADMINISTERED: 01/JUL/2020
     Route: 042
     Dates: start: 20200207
  2. PERTUZUMAB [Suspect]
     Active Substance: PERTUZUMAB
     Indication: Invasive breast carcinoma
     Dosage: LOADING DOSE, FOLLOWED BY MAINTENANCE DOSE OF 420 MG IV ON DAYS 1 AND 22??DATE OF LAST DOSE ADMINIST
     Route: 042
     Dates: start: 20200207
  3. TRASTUZUMAB [Suspect]
     Active Substance: TRASTUZUMAB
     Indication: Invasive breast carcinoma
     Dosage: 8MG/KG IV C1D1 ONLY LOADING DOSE, FOLLOWED BY MAINTENACE DOSE 6 MG/KG??DATE OF LAST DOSE ADMINISTERE
     Route: 042
     Dates: start: 20200207
  4. PACLITAXEL [Suspect]
     Active Substance: PACLITAXEL
     Indication: Invasive breast carcinoma
     Dosage: ON DAYS 1, 8, 15, 22, 29, AND 36??DATE OF LAST DOSE ADIMINISTERED : 24/JUN/2020
     Route: 042
     Dates: start: 20200207
  5. ACETAMINOPHEN [Concomitant]
     Active Substance: ACETAMINOPHEN
  6. FAMOTIDINE [Concomitant]
     Active Substance: FAMOTIDINE
  7. LOPERAMIDE [Concomitant]
     Active Substance: LOPERAMIDE
  8. PROCHLORPERAZINE [Concomitant]
     Active Substance: PROCHLORPERAZINE

REACTIONS (1)
  - Respiratory failure [Recovered/Resolved]

NARRATIVE: CASE EVENT DATE: 20200730
